FAERS Safety Report 5809138-5 (Version None)
Quarter: 2008Q3

REPORT INFORMATION
  Report Type: 
  Country: None (occurrence: None)
  Receive Date: 20080714
  Receipt Date: 20080702
  Transmission Date: 20090109
  Serious: Yes (Life-Threatening, Hospitalization, Other)
  Sender: FDA-Public Use
  Company Number: JP-PFIZER INC-2008040765

PATIENT
  Sex: Female
  Weight: 98.4 kg

DRUGS (8)
  1. REVATIO [Suspect]
     Indication: PULMONARY ARTERIAL HYPERTENSION
     Dates: start: 20080424, end: 20080507
  2. WARFARIN SODIUM [Suspect]
     Indication: PROPHYLAXIS
     Route: 048
     Dates: start: 20080314, end: 20080430
  3. LASIX [Concomitant]
     Route: 048
  4. ALDACTONE [Concomitant]
     Route: 048
  5. VITAMEDIN CAPSULE [Concomitant]
     Route: 048
  6. ALLOPURINOL [Concomitant]
     Route: 048
  7. MAG-LAX [Concomitant]
     Route: 048
  8. GLYSENNID [Concomitant]
     Route: 048

REACTIONS (2)
  - ANAEMIA [None]
  - MENORRHAGIA [None]
